FAERS Safety Report 7414061 (Version 4)
Quarter: 2013Q4

REPORT INFORMATION
  Report Type: Spontaneous
  Country: US (occurrence: US)
  Receive Date: 20100609
  Receipt Date: 20131230
  Transmission Date: 20140711
  Serious: Yes (Other)
  Sender: FDA-Public Use
  Company Number: US-JNJFOC-20100601187

PATIENT
  Age: 53 Year
  Sex: Female
  Weight: 52.16 kg

DRUGS (5)
  1. SANDOZ FENTANYL TRANSDERMAL SYSTEM [Suspect]
     Indication: PAIN
     Route: 062
  2. SANDOZ FENTANYL TRANSDERMAL SYSTEM [Suspect]
     Indication: PAIN
     Route: 062
     Dates: start: 2005
  3. NUCYNTA [Concomitant]
     Indication: MUSCLE RELAXANT THERAPY
     Dosage: DOSAGE: 1 EVERY 4 TO 6 HOURS
     Route: 048
     Dates: start: 201002
  4. NUCYNTA [Concomitant]
     Indication: PAIN
     Dosage: DOSAGE: 1 EVERY 4 TO 6 HOURS
     Route: 048
     Dates: start: 201002
  5. HYDROCODONE [Concomitant]
     Indication: PAIN
     Dosage: DOSE: 10/650 MG/ I EVERY 4 TO 6 HOURS AS NEEDED
     Route: 048
     Dates: start: 201002

REACTIONS (12)
  - Scoliosis [Not Recovered/Not Resolved]
  - Foot fracture [Recovered/Resolved]
  - Multiple sclerosis relapse [Recovered/Resolved]
  - Abnormal loss of weight [Recovered/Resolved]
  - Eating disorder [Recovered/Resolved]
  - Dermal cyst [Recovered/Resolved]
  - Scar [Recovered/Resolved]
  - Product quality issue [Not Recovered/Not Resolved]
  - Wrong technique in drug usage process [Not Recovered/Not Resolved]
  - Product quality issue [Unknown]
  - Product quality issue [Unknown]
  - Product quality issue [Unknown]
